FAERS Safety Report 24858281 (Version 1)
Quarter: 2025Q1

REPORT INFORMATION
  Report Type: Report from Study
  Country: US (occurrence: US)
  Receive Date: 20250117
  Receipt Date: 20250117
  Transmission Date: 20250408
  Serious: No
  Sender: SHIONOGI
  Company Number: US-SHIONOGI, INC-2019000460

PATIENT
  Age: 15 Year
  Sex: Male
  Weight: 82.1 kg

DRUGS (35)
  1. CEFIDEROCOL [Suspect]
     Active Substance: CEFIDEROCOL
     Indication: Osteomyelitis bacterial
     Dosage: 2 G, 8 HOUR
     Route: 042
     Dates: start: 20190405
  2. CEFIDEROCOL [Suspect]
     Active Substance: CEFIDEROCOL
     Indication: Drug resistance
  3. CEFIDEROCOL [Suspect]
     Active Substance: CEFIDEROCOL
     Indication: Pseudomonas infection
  4. AZTREONAM [Suspect]
     Active Substance: AZTREONAM
     Indication: Osteomyelitis
     Route: 042
     Dates: start: 20190221, end: 20190418
  5. AZTREONAM [Suspect]
     Active Substance: AZTREONAM
     Indication: Drug resistance
     Dosage: 2 G, 8 HOUR
     Route: 042
     Dates: start: 20190221, end: 20190418
  6. AZTREONAM [Suspect]
     Active Substance: AZTREONAM
     Indication: Pseudomonas infection
  7. AVIBACTAM SODIUM\CEFTAZIDIME [Suspect]
     Active Substance: AVIBACTAM SODIUM\CEFTAZIDIME
     Indication: Osteomyelitis bacterial
     Dosage: 2.5 G, 8 HOUR
     Route: 042
     Dates: start: 20190313, end: 20190405
  8. AVIBACTAM SODIUM\CEFTAZIDIME [Suspect]
     Active Substance: AVIBACTAM SODIUM\CEFTAZIDIME
     Indication: Pseudomonas infection
  9. AVIBACTAM SODIUM\CEFTAZIDIME [Suspect]
     Active Substance: AVIBACTAM SODIUM\CEFTAZIDIME
     Indication: Drug resistance
  10. AVIBACTAM SODIUM\CEFTAZIDIME [Suspect]
     Active Substance: AVIBACTAM SODIUM\CEFTAZIDIME
     Indication: Osteomyelitis bacterial
     Route: 042
     Dates: start: 20190313, end: 20190405
  11. CETIRIZINE [Concomitant]
     Active Substance: CETIRIZINE HYDROCHLORIDE
     Indication: Pruritus
     Route: 065
     Dates: start: 20190301
  12. LACTOBACILLUS ACIDOPHILUS [Concomitant]
     Active Substance: LACTOBACILLUS ACIDOPHILUS
     Indication: Probiotic therapy
     Route: 065
     Dates: start: 20190303
  13. CEFEPIME [Concomitant]
     Active Substance: CEFEPIME HYDROCHLORIDE
     Indication: Osteomyelitis bacterial
     Route: 042
     Dates: start: 20190219, end: 20190220
  14. CEFEPIME [Concomitant]
     Active Substance: CEFEPIME HYDROCHLORIDE
     Dosage: 2 G, 12 HOUR (200 ML/HOUR)
     Route: 042
     Dates: start: 20190219, end: 20190220
  15. FLAGYL [Concomitant]
     Active Substance: METRONIDAZOLE\METRONIDAZOLE HYDROCHLORIDE
     Indication: Osteomyelitis bacterial
     Dosage: 500 MG, 8 HOUR, 200 ML/HR
     Route: 042
     Dates: start: 20190219, end: 20190225
  16. FLAGYL [Concomitant]
     Active Substance: METRONIDAZOLE\METRONIDAZOLE HYDROCHLORIDE
     Indication: Drainage
     Dosage: 10 DAYS
     Route: 042
  17. VANCOMYCIN [Concomitant]
     Active Substance: VANCOMYCIN
     Indication: Osteomyelitis bacterial
     Route: 042
     Dates: start: 20190219, end: 20190221
  18. VANCOMYCIN [Concomitant]
     Active Substance: VANCOMYCIN
     Indication: Drug resistance
     Dosage: 1000 MG, 8 HOUR, 200 ML/HR
     Route: 042
     Dates: start: 20190219, end: 20190221
  19. POLYMYXIN B [Concomitant]
     Active Substance: POLYMYXIN B
     Indication: Osteomyelitis bacterial
     Route: 065
     Dates: start: 20190226, end: 20190313
  20. POLYMYXIN B [Concomitant]
     Active Substance: POLYMYXIN B
     Indication: Drug resistance
  21. TIGECYCLINE [Concomitant]
     Active Substance: TIGECYCLINE
     Indication: Osteomyelitis bacterial
     Route: 065
     Dates: start: 201903, end: 20190313
  22. TIGECYCLINE [Concomitant]
     Active Substance: TIGECYCLINE
     Indication: Klebsiella infection
     Route: 065
     Dates: start: 20190301, end: 201903
  23. TIGECYCLINE [Concomitant]
     Active Substance: TIGECYCLINE
     Dosage: 100 MG, 12 HOUR, LOADING DOSE
     Route: 065
     Dates: start: 20190301, end: 201903
  24. TIGECYCLINE [Concomitant]
     Active Substance: TIGECYCLINE
     Dosage: 100 MG, 12 HOUR, MAINTENANCE DOSE
     Route: 065
     Dates: start: 201903, end: 20190313
  25. LOVENOX [Concomitant]
     Active Substance: ENOXAPARIN SODIUM
     Indication: Thrombosis in device
     Route: 065
     Dates: start: 20190413
  26. LOVENOX [Concomitant]
     Active Substance: ENOXAPARIN SODIUM
     Indication: Purulent discharge
     Route: 042
  27. CALCIUM [Concomitant]
     Active Substance: CALCIUM
     Indication: Hypoaesthesia
     Route: 065
  28. CALCIUM [Concomitant]
     Active Substance: CALCIUM
     Indication: Vision blurred
  29. CALCIUM [Concomitant]
     Active Substance: CALCIUM
     Indication: Paraesthesia oral
  30. ASCORBIC ACID [Concomitant]
     Active Substance: ASCORBIC ACID
     Indication: Hypoaesthesia
     Route: 065
  31. ASCORBIC ACID [Concomitant]
     Active Substance: ASCORBIC ACID
     Indication: Vision blurred
  32. ASCORBIC ACID [Concomitant]
     Active Substance: ASCORBIC ACID
     Indication: Paraesthesia oral
  33. ASCORBIC ACID [Concomitant]
     Active Substance: ASCORBIC ACID
     Indication: Dizziness
  34. LACTOBACILLUS ACIDOPHILUS [Concomitant]
     Active Substance: LACTOBACILLUS ACIDOPHILUS
     Indication: Probiotic therapy
     Route: 065
     Dates: start: 20190303
  35. FLAGYL [Concomitant]
     Active Substance: METRONIDAZOLE\METRONIDAZOLE HYDROCHLORIDE
     Indication: Osteomyelitis bacterial
     Route: 042
     Dates: start: 20190219, end: 20190225

REACTIONS (5)
  - Hypertransaminasaemia [Recovered/Resolved]
  - Jugular vein thrombosis [Recovering/Resolving]
  - Brachiocephalic vein thrombosis [Recovering/Resolving]
  - Off label use [Unknown]
  - White blood cell count decreased [Recovered/Resolved]

NARRATIVE: CASE EVENT DATE: 20190408
